FAERS Safety Report 16891609 (Version 2)
Quarter: 2020Q3

REPORT INFORMATION
  Report Type: Report from Study
  Country: KR (occurrence: KR)
  Receive Date: 20191007
  Receipt Date: 20200731
  Transmission Date: 20201102
  Serious: Yes (Death, Life-Threatening, Hospitalization, Other)
  Sender: FDA-Public Use
  Company Number: KR-ACTELION-A-CH2019-196292

PATIENT
  Age: 53 Year
  Sex: Female
  Weight: 51.8 kg

DRUGS (10)
  1. INDENOL [Concomitant]
     Active Substance: PROPRANOLOL HYDROCHLORIDE
     Dosage: 1 DF, QD
     Route: 048
     Dates: start: 20190105, end: 20190221
  2. LASIX [Concomitant]
     Active Substance: FUROSEMIDE
     Dosage: 20 MG, QD
     Dates: start: 20181026, end: 20190221
  3. DIGOSIN [Concomitant]
     Active Substance: DIGOXIN
     Dosage: 0.12 MG, QD
     Route: 048
     Dates: start: 20181026, end: 20190221
  4. URSA [Concomitant]
     Active Substance: URSODIOL
     Dosage: 50 MG, QD
     Route: 048
     Dates: start: 20181026, end: 20190221
  5. METHIMAZOLE. [Concomitant]
     Active Substance: METHIMAZOLE
     Dosage: 3 DF, QD
     Route: 048
     Dates: start: 20190103, end: 20190221
  6. LIPITOR [Concomitant]
     Active Substance: ATORVASTATIN CALCIUM
     Dosage: 1 DF, QD
     Route: 048
     Dates: start: 20190105, end: 20190221
  7. ALBUMIN [Concomitant]
     Active Substance: ALBUMIN HUMAN
     Dosage: 50 ML, QD
     Route: 042
     Dates: start: 20190105, end: 20190221
  8. OPSUMIT [Suspect]
     Active Substance: MACITENTAN
     Indication: PULMONARY ARTERIAL HYPERTENSION
     Dosage: 10 MG, QD
     Route: 048
     Dates: start: 20190105, end: 20190211
  9. ALDACTONE [Concomitant]
     Active Substance: SPIRONOLACTONE
     Dosage: 12.5 MG, QD
     Route: 048
     Dates: start: 20181026, end: 20190221
  10. XARELTO [Concomitant]
     Active Substance: RIVAROXABAN
     Dosage: 1 DF, QD
     Route: 048
     Dates: start: 20190105, end: 20190221

REACTIONS (13)
  - Hepatic enzyme increased [Fatal]
  - Hepatic encephalopathy [Not Recovered/Not Resolved]
  - Hyponatraemia [Unknown]
  - Irregular breathing [Unknown]
  - Hypoxia [Unknown]
  - Bacterial sepsis [Unknown]
  - Hepatic cirrhosis [Fatal]
  - Cardio-respiratory arrest [Fatal]
  - Septic shock [Unknown]
  - Splenomegaly [Unknown]
  - Concomitant disease aggravated [Fatal]
  - Altered state of consciousness [Not Recovered/Not Resolved]
  - Concomitant disease progression [Unknown]

NARRATIVE: CASE EVENT DATE: 201902
